FAERS Safety Report 4364952-0 (Version None)
Quarter: 2004Q2

REPORT INFORMATION
  Report Type: 
  Country: None (occurrence: None)
  Receive Date: 20040521
  Receipt Date: 20040513
  Transmission Date: 20050107
  Serious: Yes (Hospitalization)
  Sender: FDA-Public Use
  Company Number: 2004-05-0675

PATIENT
  Sex: Male

DRUGS (2)
  1. AERIUS   (DESLORATADINE) 'LIKE CLARINEX' [Suspect]
     Indication: PREMEDICATION
     Dosage: ORAL
     Route: 048
  2. IODINE [Suspect]
     Indication: INVESTIGATION

REACTIONS (1)
  - LARYNGEAL OEDEMA [None]
